FAERS Safety Report 23361211 (Version 1)
Quarter: 2024Q1

REPORT INFORMATION
  Report Type: Spontaneous
  Country: CN (occurrence: CN)
  Receive Date: 20240103
  Receipt Date: 20240103
  Transmission Date: 20240410
  Serious: Yes (Hospitalization, Other)
  Sender: FDA-Public Use
  Company Number: CN-MYLANLABS-2023M1138105

PATIENT
  Age: 45 Year
  Sex: Female

DRUGS (1)
  1. CELEBREX [Suspect]
     Active Substance: CELECOXIB
     Indication: Periarthritis
     Dosage: 2 DOSAGE FORM, QD
     Route: 065

REACTIONS (3)
  - Gastritis erosive [Unknown]
  - Pancreatitis acute [Unknown]
  - Duodenal polyp [Unknown]
